FAERS Safety Report 25670998 (Version 1)
Quarter: 2025Q3

REPORT INFORMATION
  Report Type: Spontaneous
  Country: US (occurrence: None)
  Receive Date: 20250811
  Receipt Date: 20250811
  Transmission Date: 20251020
  Serious: No
  Sender: FDA-CTU
  Company Number: None

PATIENT

DRUGS (8)
  1. DEFINITY [Suspect]
     Active Substance: PERFLUTREN
     Indication: Echocardiogram
     Route: 050
     Dates: start: 20250721, end: 20250721
  2. TYLENOL [Concomitant]
     Active Substance: ACETAMINOPHEN
  3. UNSPECIFIED INGREDIENT [Concomitant]
     Active Substance: UNSPECIFIED INGREDIENT
  4. VITAMIN D [Concomitant]
     Active Substance: VITAMIN D NOS
  5. ZINC [Concomitant]
     Active Substance: ZINC
  6. PSYLLIUM [Concomitant]
     Active Substance: PLANTAGO SEED
  7. VITAMIN C [Concomitant]
     Active Substance: ASCORBIC ACID
  8. VITAMIN E [Concomitant]
     Active Substance: .ALPHA.-TOCOPHEROL

REACTIONS (6)
  - Neck pain [None]
  - Muscle spasms [None]
  - Back pain [None]
  - Muscle spasms [None]
  - Headache [None]
  - Nausea [None]

NARRATIVE: CASE EVENT DATE: 20250721
